FAERS Safety Report 6153153-1 (Version None)
Quarter: 2009Q2

REPORT INFORMATION
  Report Type: 
  Country: None (occurrence: None)
  Receive Date: 20090413
  Receipt Date: 20090401
  Transmission Date: 20091009
  Serious: Yes (Hospitalization)
  Sender: FDA-Public Use
  Company Number: FR-ELI_LILLY_AND_COMPANY-FR200901002285

PATIENT
  Age: 62 Year
  Sex: Female
  Weight: 62 kg

DRUGS (11)
  1. FORTEO [Suspect]
     Indication: OSTEOPOROSIS
     Dosage: 20 UG, DAILY (1/D)
     Route: 058
     Dates: start: 20081117, end: 20090109
  2. FORTEO [Suspect]
     Dosage: 20 UG, DAILY (1/D)
     Route: 058
     Dates: start: 20090111
  3. AMLODIPINE [Concomitant]
     Dosage: 5 MG, DAILY (1/D)
     Route: 048
  4. CALCIDOSE [Concomitant]
     Dosage: 1 D/F, 2/D
     Route: 065
  5. DAFALGAN [Concomitant]
     Indication: PAIN
     Dosage: 500 MG, OTHER (5/D) IF PAIN
     Route: 048
  6. INIPOMP [Concomitant]
     Dosage: 20 MG, DAILY (1/D)
     Route: 065
  7. LAMICTAL [Concomitant]
     Dosage: 0.5 D/F, DAILY (1/D)
     Route: 048
  8. LEXOMIL [Concomitant]
     Indication: INSOMNIA
     Dosage: 0.5 D/F, DAILY (1/D)
     Route: 065
  9. LIPANTHYL [Concomitant]
     Dosage: 160 MG, DAILY (1/D)
     Route: 048
  10. SOTALOL HYDROCHLORIDE [Concomitant]
     Dosage: 80 MG, 2/D
     Route: 048
  11. LAMICTAL [Concomitant]
     Dosage: 25 MG, DAILY (1/D)
     Route: 048

REACTIONS (2)
  - FALL [None]
  - HUMERUS FRACTURE [None]
